FAERS Safety Report 4355389-9 (Version None)
Quarter: 2004Q2

REPORT INFORMATION
  Report Type: 
  Country: None (occurrence: None)
  Receive Date: 20040505
  Receipt Date: 20040428
  Transmission Date: 20050107
  Serious: Yes (Hospitalization)
  Sender: FDA-Public Use
  Company Number: 200410111BSV

PATIENT
  Age: 38 Year

DRUGS (2)
  1. CIPROFLOXACIN [Suspect]
     Indication: PYREXIA
     Dosage: 1000 MG, TOTAL DOSE DAILY
     Dates: start: 20040302, end: 20040306
  2. ALLOPUR [Concomitant]

REACTIONS (6)
  - COUGH [None]
  - LIVER FUNCTION TEST ABNORMAL [None]
  - MUSCLE CRAMP [None]
  - PYREXIA [None]
  - RENAL FAILURE [None]
  - SYNCOPE [None]
